FAERS Safety Report 8176471-4 (Version None)
Quarter: 2012Q1

REPORT INFORMATION
  Report Type: 
  Country: None (occurrence: None)
  Receive Date: 20120301
  Receipt Date: 20120223
  Transmission Date: 20120608
  Serious: Yes (Hospitalization)
  Sender: FDA-Public Use
  Company Number: BR-PFIZER INC-2012048958

PATIENT
  Age: 42 Year
  Sex: Male

DRUGS (4)
  1. CELEBREX [Suspect]
     Indication: PAIN
     Dosage: 1 CAPSULE OF 200 MG, 1X/DAY
     Route: 048
     Dates: start: 20070223, end: 20110101
  2. FLUOXETINE HYDROCHLORIDE [Concomitant]
     Indication: DEPRESSION
     Dosage: 1 TABLET (UNSPECIFIED DOSAGE), 1X/DAY
  3. LOSARTAN [Concomitant]
     Indication: BLOOD PRESSURE INCREASED
     Dosage: 1 TABLET (UNSPECIFIED DOSAGE), 2X/DAY
  4. PHENOBARBITAL TAB [Concomitant]
     Indication: CONVULSION
     Dosage: 2 TABLETS (UNSPECIFIED DOSAGE), 1X/DAY

REACTIONS (3)
  - KNEE OPERATION [None]
  - ARTHRALGIA [None]
  - ARTHROPATHY [None]
